FAERS Safety Report 8823980 (Version 1)
Quarter: 2012Q4

REPORT INFORMATION
  Report Type: 
  Country: US (occurrence: US)
  Receive Date: 20121003
  Receipt Date: 20121003
  Transmission Date: 20130627
  Serious: Yes (Other)
  Sender: FDA-Public Use
  Company Number: US-009507513-1210USA000814

PATIENT
  Age: 61 Year
  Sex: Male

DRUGS (5)
  1. JANUVIA [Suspect]
     Route: 048
  2. VICTOZA [Suspect]
     Dosage: 0.6 ml, two doses
     Route: 058
  3. LIPITOR [Suspect]
     Route: 065
  4. METFORMIN [Suspect]
     Route: 065
  5. ACTOS [Suspect]
     Route: 065

REACTIONS (3)
  - Acute myocardial infarction [Unknown]
  - Nausea [Unknown]
  - Chest pain [Unknown]
